FAERS Safety Report 6343391-7 (Version None)
Quarter: 2009Q3

REPORT INFORMATION
  Report Type: 
  Country: None (occurrence: None)
  Receive Date: 20090908
  Receipt Date: 20090901
  Transmission Date: 20100115
  Serious: Yes (Other)
  Sender: FDA-Public Use
  Company Number: PHHY2009GB37433

PATIENT
  Sex: Female

DRUGS (2)
  1. SANDIMMUNE [Suspect]
     Indication: COLITIS ULCERATIVE
     Dosage: 150 MG, BID
     Route: 042
  2. SANDIMMUNE [Suspect]
     Dosage: 300 MG, QD
     Route: 042

REACTIONS (3)
  - DRUG ADMINISTRATION ERROR [None]
  - FEELING HOT [None]
  - HEADACHE [None]
